FAERS Safety Report 19207143 (Version 3)
Quarter: 2021Q2

REPORT INFORMATION
  Report Type: Spontaneous
  Country: US (occurrence: US)
  Receive Date: 20210501
  Receipt Date: 20210629
  Transmission Date: 20210717
  Serious: Yes (Death)
  Sender: FDA-Public Use
  Company Number: US-ROCHE-2822284

PATIENT
  Sex: Male

DRUGS (31)
  1. ELIQUIS [Concomitant]
     Active Substance: APIXABAN
     Indication: ANTICOAGULANT THERAPY
     Dosage: 1 TABLET BY MOUTH TWICE DAILY
     Dates: end: 20210411
  2. ROBAXIN [Concomitant]
     Active Substance: METHOCARBAMOL
     Route: 048
  3. ESBRIET [Suspect]
     Active Substance: PIRFENIDONE
     Indication: PRODUCT USED FOR UNKNOWN INDICATION
     Dosage: TAKE 1 CAP TID FOR A WEEK THEN 2 CAP TID FOR A WEEK AND THEN 3 CAP TID FOR A WEEK
     Route: 048
     Dates: start: 202103
  4. CRESTOR [Concomitant]
     Active Substance: ROSUVASTATIN CALCIUM
     Dosage: ONE TABLET BY MOUTH AT NIGHT
     Route: 048
  5. PROZAC [Concomitant]
     Active Substance: FLUOXETINE HYDROCHLORIDE
     Dosage: ONE CAPSULE EVERY DAY
  6. CLARITIN [Concomitant]
     Active Substance: LORATADINE
     Route: 048
  7. CINNAMON. [Concomitant]
     Active Substance: CINNAMON
     Route: 048
  8. ALBUTEROL SULFATE. [Concomitant]
     Active Substance: ALBUTEROL SULFATE
  9. GLUCOPHAGE [Concomitant]
     Active Substance: METFORMIN HYDROCHLORIDE
     Indication: DIABETES MELLITUS
     Dosage: ONE TABLET WITH MEAL TWICE DAILY
     Route: 048
  10. ACETAMINOPHEN. [Concomitant]
     Active Substance: ACETAMINOPHEN
  11. NITROSTAT [Concomitant]
     Active Substance: NITROGLYCERIN
     Indication: CHEST PAIN
     Route: 060
  12. OMEGA 3 FISH OILS [Concomitant]
     Active Substance: OMEGA-3 FATTY ACIDS
     Route: 048
  13. ESBRIET [Suspect]
     Active Substance: PIRFENIDONE
     Indication: INTERSTITIAL LUNG DISEASE
  14. HYDROCODONE [Concomitant]
     Active Substance: HYDROCODONE
  15. AVAPRO [Concomitant]
     Active Substance: IRBESARTAN
     Indication: HYPERTENSION
     Dosage: ONE TABLET BY MOUTH DAILY
     Route: 048
  16. NORVASC [Concomitant]
     Active Substance: AMLODIPINE BESYLATE
     Indication: HYPERTENSION
     Dosage: ONE TABLET EVERY DAY
  17. SYNTHROID [Concomitant]
     Active Substance: LEVOTHYROXINE SODIUM
     Dosage: ONE TABLET ONCE DAILY ON AN EMPTY STOMACH
  18. TOPROL XL [Concomitant]
     Active Substance: METOPROLOL SUCCINATE
     Indication: BLOOD PRESSURE MEASUREMENT
     Dosage: ONE TABLET BY MOUTH TWICE DAILY
     Route: 048
  19. AMOXICILLIN. [Concomitant]
     Active Substance: AMOXICILLIN
  20. PREVACID [Concomitant]
     Active Substance: LANSOPRAZOLE
     Dosage: ONE CAPSULE EVERY DAY
  21. NOVOLOG [Concomitant]
     Active Substance: INSULIN ASPART
     Dosage: 13 UNITS WITH MEAL
  22. FLONASE [Concomitant]
     Active Substance: FLUTICASONE PROPIONATE
     Dosage: ADMINISTERED 2 SPRAY IN EACH NOSTRIL DAILY
  23. PRASUGREL. [Concomitant]
     Active Substance: PRASUGREL
  24. IMDUR [Concomitant]
     Active Substance: ISOSORBIDE MONONITRATE
     Route: 048
  25. NORCO [Concomitant]
     Active Substance: ACETAMINOPHEN\HYDROCODONE BITARTRATE
     Route: 048
  26. LASIX [Concomitant]
     Active Substance: FUROSEMIDE
     Route: 048
  27. ALBUTEROL HFA [Concomitant]
     Active Substance: ALBUTEROL SULFATE
     Indication: DYSPNOEA
     Dosage: INHALED 2 PUFFS EVERY 4 HRS
  28. TRULICITY [Concomitant]
     Active Substance: DULAGLUTIDE
     Indication: DIABETES MELLITUS
     Dosage: INJECT THE CONTENT OF ONE PEN UNDER THE SKIN EVERY 7 DAYS
  29. LANTUS [Concomitant]
     Active Substance: INSULIN GLARGINE
     Dosage: 100 UNITS
  30. EFFIENT [Concomitant]
     Active Substance: PRASUGREL HYDROCHLORIDE
     Route: 048
  31. VOLTAREN [Concomitant]
     Active Substance: DICLOFENAC SODIUM
     Dosage: APPLY 2 GM TO AFFECTED AREA 4 TIMES A DAY

REACTIONS (1)
  - Cardiac arrest [Fatal]
